FAERS Safety Report 7531772-5 (Version None)
Quarter: 2011Q2

REPORT INFORMATION
  Report Type: 
  Country: None (occurrence: None)
  Receive Date: 20110608
  Receipt Date: 20110601
  Transmission Date: 20111010
  Serious: Yes (Hospitalization)
  Sender: FDA-Public Use
  Company Number: US-ROCHE-776110

PATIENT
  Sex: Male
  Weight: 91.6 kg

DRUGS (2)
  1. ACTEMRA [Suspect]
     Indication: RHEUMATOID ARTHRITIS
     Dosage: FORM: INFUSION
     Route: 042
     Dates: start: 20110420
  2. ACTEMRA [Suspect]
     Route: 042
     Dates: start: 20101129

REACTIONS (2)
  - DEAFNESS [None]
  - VERTIGO [None]
